FAERS Safety Report 21242561 (Version 1)
Quarter: 2022Q3

REPORT INFORMATION
  Report Type: Spontaneous
  Country: US (occurrence: None)
  Receive Date: 20220822
  Receipt Date: 20220822
  Transmission Date: 20221026
  Serious: No
  Sender: FDA-Public Use
  Company Number: None

PATIENT
  Sex: Female

DRUGS (11)
  1. CAPECITABINE [Suspect]
     Active Substance: CAPECITABINE
     Dosage: FREQUENCY : TWICE A DAY;?
     Route: 048
  2. ALPRAZOLAM ORAL TABLET [Concomitant]
  3. CELEBREX ORAL CAPSULE [Concomitant]
  4. DULOXETINE HCL ORAL CAPSULE DERIVED [Concomitant]
  5. HYDROCORTISONE-ACETAMINOPHEN ORAL TABL [Concomitant]
  6. LAMOTRIGINE ORAL TABLET [Concomitant]
  7. METFORMIN HCL ORAL TABLET [Concomitant]
  8. METHOCARBAMOL ORAL [Concomitant]
  9. SYNTHROID ORAL TABLET [Concomitant]
  10. QUETIAPINE ORAL [Concomitant]
  11. SINGULAIR ORAL TABLET [Concomitant]

REACTIONS (1)
  - Drug intolerance [None]
